FAERS Safety Report 4488340-1 (Version None)
Quarter: 2004Q4

REPORT INFORMATION
  Report Type: 
  Country: None (occurrence: None)
  Receive Date: 20041026
  Receipt Date: 20041013
  Transmission Date: 20050328
  Serious: Yes (Other)
  Sender: FDA-Public Use
  Company Number: 2004077789

PATIENT
  Sex: Male

DRUGS (3)
  1. DILANTIN [Suspect]
     Indication: ILL-DEFINED DISORDER
  2. LEVETIRACETAM [Suspect]
     Indication: ILL-DEFINED DISORDER
  3. CARBAMAZEPINE [Suspect]
     Indication: ILL-DEFINED DISORDER

REACTIONS (3)
  - DRUG INTOLERANCE [None]
  - EPILEPSY [None]
  - THERAPY NON-RESPONDER [None]
